FAERS Safety Report 12863175 (Version 1)
Quarter: 2016Q4

REPORT INFORMATION
  Report Type: Spontaneous
  Country: CH (occurrence: CH)
  Receive Date: 20161019
  Receipt Date: 20161019
  Transmission Date: 20170207
  Serious: Yes (Hospitalization, Other)
  Sender: FDA-Public Use
  Company Number: CH-PFIZER INC-2016487815

PATIENT
  Age: 84 Year
  Sex: Female

DRUGS (5)
  1. SERESTA [Suspect]
     Active Substance: OXAZEPAM
     Dosage: 15 MG, 1X/DAY
     Route: 048
  2. LYRICA [Suspect]
     Active Substance: PREGABALIN
     Dosage: 25 MG, 1X/DAY
     Route: 048
  3. PANTOPRAZOL AXAPHARM [Concomitant]
  4. ASPIRIN CARDIO [Concomitant]
     Active Substance: ASPIRIN
  5. LOPRESSOR [Suspect]
     Active Substance: METOPROLOL TARTRATE
     Dosage: 200 MG, 1X/DAY
     Route: 048

REACTIONS (5)
  - Chronic kidney disease [Unknown]
  - Constipation [Unknown]
  - Large intestine polyp [Unknown]
  - Diverticulitis [Unknown]
  - Gastrointestinal tract mucosal pigmentation [Unknown]

NARRATIVE: CASE EVENT DATE: 20160909
